FAERS Safety Report 19887008 (Version 2)
Quarter: 2021Q4

REPORT INFORMATION
  Report Type: Spontaneous
  Country: US (occurrence: US)
  Receive Date: 20210928
  Receipt Date: 20211222
  Transmission Date: 20220303
  Serious: No
  Sender: FDA-Public Use
  Company Number: US-AUROBINDO-AUR-APL-2021-035295

PATIENT
  Age: 36 Year
  Sex: Female
  Weight: 88.435 kg

DRUGS (5)
  1. PROGESTERONE [Suspect]
     Active Substance: PROGESTERONE
     Indication: Supplementation therapy
     Dosage: 1.5 MILLILITER, DAILY
     Route: 030
     Dates: start: 20210728
  2. PROGESTERONE [Suspect]
     Active Substance: PROGESTERONE
     Dosage: 1.5 MILLILITER, DAILY
     Route: 030
     Dates: start: 20210728
  3. PROGESTERONE [Suspect]
     Active Substance: PROGESTERONE
     Dosage: UNK, THIRD VIAL
     Route: 065
  4. ESTRADIOL [Concomitant]
     Active Substance: ESTRADIOL
     Indication: Product used for unknown indication
     Dosage: 1 MILLIGRAM, 3 TIMES A DAY
     Route: 065
  5. VITAMINS [Concomitant]
     Active Substance: VITAMINS
     Indication: Product used for unknown indication
     Dosage: UNK
     Route: 065

REACTIONS (9)
  - Injection site pain [Not Recovered/Not Resolved]
  - Pain [Unknown]
  - Musculoskeletal pain [Unknown]
  - Headache [Unknown]
  - Mass [Unknown]
  - Dysgeusia [Unknown]
  - Product contamination [Unknown]
  - Device difficult to use [Unknown]
  - Exposure during pregnancy [Unknown]
